FAERS Safety Report 8509255-5 (Version None)
Quarter: 2012Q3

REPORT INFORMATION
  Report Type: 
  Country: None (occurrence: None)
  Receive Date: 20120713
  Receipt Date: 20120704
  Transmission Date: 20120928
  Serious: Yes (Other)
  Sender: FDA-Public Use
  Company Number: JP-VERTEX PHARMACEUTICALS INC.-AE-2012-010054

PATIENT
  Age: 51 Year
  Sex: Male

DRUGS (7)
  1. FAMOTIDINE [Concomitant]
     Route: 048
     Dates: start: 20120511
  2. PEGINTERFERON ALFA-2B [Concomitant]
     Indication: HEPATITIS C
     Route: 058
     Dates: start: 20120508, end: 20120528
  3. RIBAVIRIN [Concomitant]
     Route: 048
     Dates: start: 20120604
  4. TELAVIC (TELAPREVIR) [Suspect]
     Indication: HEPATITIS C
     Route: 048
     Dates: start: 20120508
  5. RIBAVIRIN [Concomitant]
     Indication: HEPATITIS C
     Route: 048
     Dates: start: 20120508, end: 20120603
  6. PEGINTERFERON ALFA-2B [Concomitant]
     Route: 058
     Dates: start: 20120604
  7. POSTERISAN [Concomitant]
     Route: 061
     Dates: start: 20120518

REACTIONS (1)
  - WHITE BLOOD CELL COUNT DECREASED [None]
